FAERS Safety Report 13328682 (Version 1)
Quarter: 2017Q1

REPORT INFORMATION
  Report Type: Report from Study
  Country: US (occurrence: US)
  Receive Date: 20170313
  Receipt Date: 20170313
  Transmission Date: 20170428
  Serious: Yes (Other)
  Sender: FDA-Public Use
  Company Number: US-AMGEN-USASL2017034759

PATIENT
  Age: 62 Year
  Sex: Female

DRUGS (1)
  1. ENBREL [Suspect]
     Active Substance: ETANERCEPT
     Indication: RHEUMATOID ARTHRITIS
     Dosage: UNK
     Route: 065

REACTIONS (7)
  - Sternal fracture [Unknown]
  - Pain [Unknown]
  - Fall [Unknown]
  - Joint arthroplasty [Unknown]
  - Rib fracture [Unknown]
  - Peripheral swelling [Unknown]
  - Peripheral arthritis [Unknown]
